FAERS Safety Report 7527449-2 (Version None)
Quarter: 2011Q2

REPORT INFORMATION
  Report Type: 
  Country: None (occurrence: None)
  Receive Date: 20110603
  Receipt Date: 20110519
  Transmission Date: 20111010
  Serious: Yes (Death, Hospitalization)
  Sender: FDA-Public Use
  Company Number: JPI-P-014806

PATIENT
  Age: 53 Year
  Sex: Male

DRUGS (13)
  1. DULOXETINE HYDROCHLORIDE [Concomitant]
  2. XYREM [Suspect]
     Indication: INSOMNIA
     Dosage: 6 GM (3 GM,2 IN 1 D),ORAL ; 7.5 GM (3.75 GM,2 IN 1 D),ORAL ; 9 GM (4.5 GM,2 IN 1 D),ORAL
     Route: 048
     Dates: start: 20041001, end: 20041216
  3. XYREM [Suspect]
     Indication: HYPERSOMNIA
     Dosage: 6 GM (3 GM,2 IN 1 D),ORAL ; 7.5 GM (3.75 GM,2 IN 1 D),ORAL ; 9 GM (4.5 GM,2 IN 1 D),ORAL
     Route: 048
     Dates: start: 20041001, end: 20041216
  4. XYREM [Suspect]
     Indication: NARCOLEPSY
     Dosage: 6 GM (3 GM,2 IN 1 D),ORAL ; 7.5 GM (3.75 GM,2 IN 1 D),ORAL ; 9 GM (4.5 GM,2 IN 1 D),ORAL
     Route: 048
     Dates: start: 20041001, end: 20041216
  5. XYREM [Suspect]
     Indication: INSOMNIA
     Dosage: 6 GM (3 GM,2 IN 1 D),ORAL ; 7.5 GM (3.75 GM,2 IN 1 D),ORAL ; 9 GM (4.5 GM,2 IN 1 D),ORAL
     Route: 048
     Dates: start: 20041217, end: 20050223
  6. XYREM [Suspect]
     Indication: HYPERSOMNIA
     Dosage: 6 GM (3 GM,2 IN 1 D),ORAL ; 7.5 GM (3.75 GM,2 IN 1 D),ORAL ; 9 GM (4.5 GM,2 IN 1 D),ORAL
     Route: 048
     Dates: start: 20041217, end: 20050223
  7. XYREM [Suspect]
     Indication: NARCOLEPSY
     Dosage: 6 GM (3 GM,2 IN 1 D),ORAL ; 7.5 GM (3.75 GM,2 IN 1 D),ORAL ; 9 GM (4.5 GM,2 IN 1 D),ORAL
     Route: 048
     Dates: start: 20041217, end: 20050223
  8. XYREM [Suspect]
     Indication: INSOMNIA
     Dosage: 6 GM (3 GM,2 IN 1 D),ORAL ; 7.5 GM (3.75 GM,2 IN 1 D),ORAL ; 9 GM (4.5 GM,2 IN 1 D),ORAL
     Route: 048
     Dates: start: 20050224, end: 20061221
  9. XYREM [Suspect]
     Indication: HYPERSOMNIA
     Dosage: 6 GM (3 GM,2 IN 1 D),ORAL ; 7.5 GM (3.75 GM,2 IN 1 D),ORAL ; 9 GM (4.5 GM,2 IN 1 D),ORAL
     Route: 048
     Dates: start: 20050224, end: 20061221
  10. XYREM [Suspect]
     Indication: NARCOLEPSY
     Dosage: 6 GM (3 GM,2 IN 1 D),ORAL ; 7.5 GM (3.75 GM,2 IN 1 D),ORAL ; 9 GM (4.5 GM,2 IN 1 D),ORAL
     Route: 048
     Dates: start: 20050224, end: 20061221
  11. ARIPIPRAZOLE [Concomitant]
  12. AMPHETAMINE DEXRROAMPHETAMINE MIXED SALTS [Concomitant]
  13. CLONAZEPAM [Concomitant]

REACTIONS (1)
  - ROAD TRAFFIC ACCIDENT [None]
